FAERS Safety Report 16755099 (Version 1)
Quarter: 2019Q3

REPORT INFORMATION
  Report Type: Report from Study
  Country: AU (occurrence: AU)
  Receive Date: 20190829
  Receipt Date: 20190829
  Transmission Date: 20191005
  Serious: Yes (Hospitalization, Other)
  Sender: FDA-Public Use
  Company Number: AU-MYLANLABS-2019M1080965

PATIENT
  Age: 22 Year
  Sex: Male

DRUGS (14)
  1. METHYLPREDNISOLONE. [Suspect]
     Active Substance: METHYLPREDNISOLONE
     Indication: MENINGITIS TUBERCULOUS
  2. PREDNISOLONE. [Suspect]
     Active Substance: PREDNISOLONE
     Indication: MENINGITIS TUBERCULOUS
     Route: 065
  3. RIFAMPICIN [Suspect]
     Active Substance: RIFAMPIN
     Indication: MENINGITIS TUBERCULOUS
     Dosage: RECEIVED FOR 3 YEAR
     Route: 065
  4. DEXAMETHASONE. [Suspect]
     Active Substance: DEXAMETHASONE
     Dosage: DEXAMETHASONE WAS THEN TAPERED BY 2MG PER FORTNIGHT OVER 2 MONTHS AND THEN WEANED UNTIL CESSATION...
     Route: 048
  5. ISONIAZID. [Suspect]
     Active Substance: ISONIAZID
     Indication: MENINGITIS TUBERCULOUS
     Dosage: RECEIVED FOR 3 YEAR
     Route: 065
  6. ETHAMBUTOL [Suspect]
     Active Substance: ETHAMBUTOL HYDROCHLORIDE
     Indication: MENINGITIS TUBERCULOUS
     Dosage: RECEIVED FOR 3 YEAR
     Route: 065
  7. CICLOSPORIN [Suspect]
     Active Substance: CYCLOSPORINE
     Indication: MENINGITIS TUBERCULOUS
     Dosage: AT 18 MONTHS, CYCLOSPORINE DOSE WAS TAPERED TO 50 MG TWICE DAILY AND SUCCESSFULLY WEANED OVER A F...
     Route: 065
  8. DEXAMETHASONE. [Suspect]
     Active Substance: DEXAMETHASONE
     Indication: PARADOXICAL DRUG REACTION
     Dosage: RECEIVED THREE TIMES DAILY.
     Route: 048
  9. METHYLPREDNISOLONE. [Suspect]
     Active Substance: METHYLPREDNISOLONE
     Indication: PARADOXICAL DRUG REACTION
     Route: 042
  10. CICLOSPORIN [Suspect]
     Active Substance: CYCLOSPORINE
     Indication: PARADOXICAL DRUG REACTION
     Dosage: 4 MG/KG/DAY.
     Route: 065
  11. DEXAMETHASONE. [Suspect]
     Active Substance: DEXAMETHASONE
     Dosage: DUE TO INITIAL SIGNIFICANT CLINICAL IMPROVEMENT HIS DEXAMETHASONE DOSING WAS TAPERED BY 1MG PER WEEK
     Route: 048
  12. DEXAMETHASONE. [Suspect]
     Active Substance: DEXAMETHASONE
     Indication: MENINGITIS TUBERCULOUS
     Dosage: RECEIVED THREE TIMES DAILY.
     Route: 048
  13. DEXAMETHASONE. [Suspect]
     Active Substance: DEXAMETHASONE
     Dosage: UNK
     Route: 048
  14. PYRAZINAMIDE. [Suspect]
     Active Substance: PYRAZINAMIDE
     Indication: MENINGITIS TUBERCULOUS
     Dosage: RECEIVED FOR 3 YEAR
     Route: 065

REACTIONS (5)
  - Meningitis tuberculous [Recovered/Resolved]
  - Gait disturbance [Unknown]
  - Paradoxical drug reaction [Recovered/Resolved]
  - Condition aggravated [Recovered/Resolved]
  - Osteonecrosis [Recovering/Resolving]
